FAERS Safety Report 7481159-9 (Version None)
Quarter: 2011Q2

REPORT INFORMATION
  Report Type: 
  Country: None (occurrence: None)
  Receive Date: 20110512
  Receipt Date: 20110512
  Transmission Date: 20111010
  Serious: Yes (Life-Threatening, Hospitalization, Disabling, Other)
  Sender: FDA-Public Use
  Company Number: None

PATIENT
  Age: 60 Year
  Sex: Female
  Weight: 18.1439 kg

DRUGS (3)
  1. TAXOTERE [Suspect]
     Indication: BREAST CANCER
     Dates: start: 20090801
  2. RADIATION IMPLANT [Concomitant]
  3. DOCETAXEL [Suspect]
     Dates: start: 20100401

REACTIONS (12)
  - VOMITING [None]
  - NEUROPATHY PERIPHERAL [None]
  - INTESTINAL OBSTRUCTION [None]
  - FATIGUE [None]
  - TOOTH DISORDER [None]
  - DIARRHOEA [None]
  - NERVE INJURY [None]
  - STOMATITIS [None]
  - NAUSEA [None]
  - OEDEMA [None]
  - WEIGHT DECREASED [None]
  - GAIT DISTURBANCE [None]
